FAERS Safety Report 8815419 (Version 2)
Quarter: 2012Q4

REPORT INFORMATION
  Report Type: 
  Country: ES (occurrence: ES)
  Receive Date: 20120928
  Receipt Date: 20121018
  Transmission Date: 20130627
  Serious: Yes (Hospitalization, Other)
  Sender: FDA-Public Use
  Company Number: ES-AMGEN-ESPSP2012059810

PATIENT
  Age: 77 Year
  Sex: Female
  Weight: 50 kg

DRUGS (9)
  1. NPLATE [Suspect]
     Indication: IDIOPATHIC THROMBOCYTOPENIC PURPURA
     Dosage: 50 mug, UNK
     Route: 058
     Dates: start: 20090805, end: 20090805
  2. NPLATE [Suspect]
     Dosage: 100 mug, UNK
     Route: 058
     Dates: start: 20090813, end: 20090813
  3. NPLATE [Suspect]
     Dosage: 150 mug, UNK
     Route: 058
     Dates: start: 20090819, end: 20090902
  4. NPLATE [Suspect]
     Dosage: 200 mug, UNK
     Route: 058
     Dates: start: 20090909, end: 20090909
  5. NPLATE [Suspect]
     Dosage: 250 mug, UNK
     Dates: start: 20090916
  6. PREDNISONE [Concomitant]
     Indication: IDIOPATHIC THROMBOCYTOPENIC PURPURA
     Dosage: 10 mg, qd
     Route: 048
  7. PARACETAMOL [Concomitant]
     Dosage: 1 g, q8h
     Route: 048
  8. LEVOFLOXACINE [Concomitant]
     Dosage: 500 mg, qd
     Route: 048
  9. CORTICOSTEROIDS [Concomitant]
     Indication: IDIOPATHIC THROMBOCYTOPENIC PURPURA
     Dosage: UNK

REACTIONS (9)
  - Therapeutic response decreased [Unknown]
  - Cellulitis [Unknown]
  - Pneumonia [Unknown]
  - Psoriasis [Unknown]
  - Idiopathic thrombocytopenic purpura [Unknown]
  - Conjunctival haemorrhage [Unknown]
  - Periorbital haematoma [Unknown]
  - Visual acuity reduced [Unknown]
  - Headache [Recovered/Resolved]
